FAERS Safety Report 16754568 (Version 2)
Quarter: 2019Q3

REPORT INFORMATION
  Report Type: Spontaneous
  Country: US (occurrence: US)
  Receive Date: 20190829
  Receipt Date: 20190926
  Transmission Date: 20191005
  Serious: No
  Sender: FDA-Public Use
  Company Number: US-BAYER-2019-157277

PATIENT

DRUGS (1)
  1. ALEVE PM [Suspect]
     Active Substance: DIPHENHYDRAMINE HYDROCHLORIDE\NAPROXEN SODIUM
     Dosage: UNK
     Dates: end: 20190818

REACTIONS (3)
  - Insomnia [Unknown]
  - Somnolence [Unknown]
  - Drug ineffective for unapproved indication [Unknown]
